FAERS Safety Report 10671497 (Version 2)
Quarter: 2015Q1

REPORT INFORMATION
  Report Type: Not Available
  Country: IT (occurrence: IT)
  Receive Date: 20141223
  Receipt Date: 20150310
  Transmission Date: 20150720
  Serious: Yes (Hospitalization)
  Sender: FDA-Public Use
  Company Number: IT-MUNDIPHARMA DS AND PHARMACOVIGILANCE-GBR-2014-0024663

PATIENT
  Age: 70 Year
  Sex: Male

DRUGS (5)
  1. SOLDESAM [Concomitant]
     Active Substance: DEXAMETHASONE
     Dosage: 60 DROP, UNK
     Route: 048
  2. ESOMEPRAZOLE [Concomitant]
     Active Substance: ESOMEPRAZOLE
     Dosage: 20 MG, UNK
  3. ORAMORPH SR SUSTAINED RELEASE [Suspect]
     Active Substance: MORPHINE SULFATE
     Indication: CANCER PAIN
     Dosage: 5 TABLET, DAILY
     Route: 048
     Dates: start: 20141115, end: 20141217
  4. INDOXEN [Concomitant]
     Active Substance: INDOMETHACIN
     Dosage: 50 MG, UNK
  5. TARGIN COMPRESSA A RILASCIO PROLUNGATO CONTIENE 20MG/10MG [Suspect]
     Active Substance: NALOXONE HYDROCHLORIDE\OXYCODONE HYDROCHLORIDE
     Indication: PRODUCT USED FOR UNKNOWN INDICATION
     Dosage: 1TABLET, DAILY
     Route: 048
     Dates: start: 20141115, end: 20141217

REACTIONS (2)
  - Vomiting [Recovered/Resolved]
  - Faecaloma [Recovered/Resolved]

NARRATIVE: CASE EVENT DATE: 20141217
